FAERS Safety Report 5755801-4 (Version None)
Quarter: 2008Q2

REPORT INFORMATION
  Report Type: 
  Country: None (occurrence: None)
  Receive Date: 20080528
  Receipt Date: 20080513
  Transmission Date: 20081010
  Serious: Yes (Other)
  Sender: FDA-Public Use
  Company Number: 2008SP009507

PATIENT
  Age: 56 Year
  Sex: Female

DRUGS (2)
  1. CLARITIN [Suspect]
     Indication: COUGH
     Dosage: 10 MG;PRN;PO
     Route: 048
     Dates: end: 20080512
  2. CLARITIN [Suspect]
     Indication: HYPERSENSITIVITY
     Dosage: 10 MG;PRN;PO
     Route: 048
     Dates: end: 20080512

REACTIONS (2)
  - DYSPNOEA [None]
  - SWOLLEN TONGUE [None]
